FAERS Safety Report 25788050 (Version 3)
Quarter: 2025Q3

REPORT INFORMATION
  Report Type: Report from Study
  Country: EU (occurrence: EU)
  Receive Date: 20250910
  Receipt Date: 20250928
  Transmission Date: 20251021
  Serious: Yes (Other)
  Sender: ABBVIE
  Company Number: EU-ABBVIE-6449290

PATIENT
  Age: 75 Year
  Sex: Female
  Weight: 69 kg

DRUGS (3)
  1. CARBIDOPA\LEVODOPA [Suspect]
     Active Substance: CARBIDOPA\LEVODOPA
     Indication: Parkinson^s disease
     Route: 050
     Dates: start: 20210311
  2. CARBIDOPA\LEVODOPA [Suspect]
     Active Substance: CARBIDOPA\LEVODOPA
  3. LEVETIRACETAM [Concomitant]
     Active Substance: LEVETIRACETAM
     Indication: Epilepsy
     Route: 048
     Dates: start: 202508

REACTIONS (8)
  - Epilepsy [Recovering/Resolving]
  - Freezing phenomenon [Not Recovered/Not Resolved]
  - Helicobacter infection [Recovered/Resolved]
  - Motor dysfunction [Unknown]
  - Parkinson^s disease [Unknown]
  - Incontinence [Unknown]
  - Loss of personal independence in daily activities [Unknown]
  - Walking aid user [Unknown]

NARRATIVE: CASE EVENT DATE: 20250801
